FAERS Safety Report 6167223-5 (Version None)
Quarter: 2009Q2

REPORT INFORMATION
  Report Type: 
  Country: None (occurrence: None)
  Receive Date: 20090423
  Receipt Date: 20090408
  Transmission Date: 20091009
  Serious: Yes (Hospitalization)
  Sender: FDA-Public Use
  Company Number: DSU-2009-00864

PATIENT
  Age: 31 Year
  Sex: Female
  Weight: 107.0489 kg

DRUGS (2)
  1. AZOR [Suspect]
     Indication: HYPERTENSION
     Dosage: 5/20 MG (QD), PER ORAL
     Route: 048
     Dates: start: 20090330, end: 20090406
  2. UNSPECIFIED ANTI-ANXIETY MEDICATIONS  (ANXIOLYTICS) [Concomitant]

REACTIONS (13)
  - BURNING SENSATION [None]
  - CHEST PAIN [None]
  - DIZZINESS [None]
  - DYSPNOEA [None]
  - ELECTROCARDIOGRAM ABNORMAL [None]
  - FEAR [None]
  - INFLUENZA LIKE ILLNESS [None]
  - MUSCLE SPASMS [None]
  - OEDEMA PERIPHERAL [None]
  - PALPITATIONS [None]
  - PRESYNCOPE [None]
  - SLEEP DISORDER [None]
  - TACHYCARDIA [None]
